FAERS Safety Report 25938867 (Version 1)
Quarter: 2025Q4

REPORT INFORMATION
  Report Type: Report from Study
  Country: CO (occurrence: CO)
  Receive Date: 20251019
  Receipt Date: 20251019
  Transmission Date: 20260117
  Serious: Yes (Death, Hospitalization)
  Sender: ABBVIE
  Company Number: CO-ABBVIE-6509634

PATIENT
  Age: 71 Year
  Sex: Male

DRUGS (1)
  1. VENCLEXTA [Suspect]
     Active Substance: VENETOCLAX
     Indication: Acute myeloid leukaemia
     Dosage: BOTTLE 100MG
     Route: 048
     Dates: start: 20241024, end: 20250826

REACTIONS (2)
  - Brain death [Fatal]
  - Cerebral thrombosis [Fatal]

NARRATIVE: CASE EVENT DATE: 20251001
